FAERS Safety Report 9843392 (Version 1)
Quarter: 2013Q4

REPORT INFORMATION
  Report Type: Spontaneous
  Country: US (occurrence: None)
  Receive Date: 20131223
  Receipt Date: 20131223
  Transmission Date: 20140711
  Serious: No
  Sender: FDA-Public Use
  Company Number: 219399LEO

PATIENT
  Age: 95 Year
  Sex: Female

DRUGS (1)
  1. PICATO, 0.05%, GEL [Suspect]
     Indication: ACTINIC KERATOSIS
     Dates: start: 20121030, end: 20121031

REACTIONS (4)
  - Application site erythema [None]
  - Drug administration error [None]
  - Drug administered at inappropriate site [None]
  - Prescribed overdose [None]
